FAERS Safety Report 23524753 (Version 8)
Quarter: 2025Q1

REPORT INFORMATION
  Report Type: Spontaneous
  Country: US (occurrence: US)
  Receive Date: 20240215
  Receipt Date: 20250217
  Transmission Date: 20250409
  Serious: Yes (Other)
  Sender: CSL BEHRING
  Company Number: US-BEH-2024168287

PATIENT
  Age: 51 Year
  Sex: Male

DRUGS (14)
  1. IDELVION [Suspect]
     Active Substance: COAGULATION FACTOR IX RECOMBINANT HUMAN
     Indication: Factor IX deficiency
     Route: 042
     Dates: start: 202401
  2. IDELVION [Suspect]
     Active Substance: COAGULATION FACTOR IX RECOMBINANT HUMAN
     Indication: Factor IX deficiency
     Route: 042
     Dates: start: 202401
  3. IDELVION [Suspect]
     Active Substance: COAGULATION FACTOR IX RECOMBINANT HUMAN
     Indication: Prophylaxis
     Route: 042
     Dates: start: 202401
  4. IDELVION [Suspect]
     Active Substance: COAGULATION FACTOR IX RECOMBINANT HUMAN
     Indication: Prophylaxis
     Route: 042
     Dates: start: 202401
  5. IDELVION [Suspect]
     Active Substance: COAGULATION FACTOR IX RECOMBINANT HUMAN
     Route: 042
  6. IDELVION [Suspect]
     Active Substance: COAGULATION FACTOR IX RECOMBINANT HUMAN
     Route: 042
  7. IDELVION [Suspect]
     Active Substance: COAGULATION FACTOR IX RECOMBINANT HUMAN
     Route: 042
     Dates: start: 202401
  8. IDELVION [Suspect]
     Active Substance: COAGULATION FACTOR IX RECOMBINANT HUMAN
     Route: 042
     Dates: start: 202401
  9. IDELVION [Suspect]
     Active Substance: COAGULATION FACTOR IX RECOMBINANT HUMAN
     Dosage: 5040 IU, QW
     Route: 042
     Dates: start: 202401
  10. IDELVION [Suspect]
     Active Substance: COAGULATION FACTOR IX RECOMBINANT HUMAN
     Dosage: 5040 IU, QW
     Route: 042
     Dates: start: 202401
  11. IDELVION [Suspect]
     Active Substance: COAGULATION FACTOR IX RECOMBINANT HUMAN
     Indication: Factor IX deficiency
     Route: 042
     Dates: start: 202401
  12. IDELVION [Suspect]
     Active Substance: COAGULATION FACTOR IX RECOMBINANT HUMAN
     Indication: Factor IX deficiency
     Route: 042
     Dates: start: 202401
  13. IDELVION [Suspect]
     Active Substance: COAGULATION FACTOR IX RECOMBINANT HUMAN
     Indication: Prophylaxis
     Dosage: 5040 IU, QW
     Route: 042
     Dates: start: 202401
  14. IDELVION [Suspect]
     Active Substance: COAGULATION FACTOR IX RECOMBINANT HUMAN
     Indication: Prophylaxis
     Dosage: 5040 IU, QW
     Route: 042
     Dates: start: 202401

REACTIONS (6)
  - Gastric pacemaker insertion [Unknown]
  - Haemorrhage [Unknown]
  - Haemarthrosis [Unknown]
  - Impaired gastric emptying [Unknown]
  - Pain [Unknown]
  - Haemarthrosis [Unknown]

NARRATIVE: CASE EVENT DATE: 20240126
